FAERS Safety Report 21597756 (Version 2)
Quarter: 2023Q1

REPORT INFORMATION
  Report Type: Spontaneous
  Country: US (occurrence: US)
  Receive Date: 20221115
  Receipt Date: 20230302
  Transmission Date: 20230418
  Serious: Yes (Hospitalization, Other)
  Sender: FDA-Public Use
  Company Number: US-BRISTOL-MYERS SQUIBB COMPANY-2022-135437

PATIENT
  Age: 46 Year
  Sex: Female

DRUGS (2)
  1. THALIDOMIDE [Suspect]
     Active Substance: THALIDOMIDE
     Indication: Systemic lupus erythematosus
     Dosage: BLISTER PACK- DAILY
     Route: 048
     Dates: start: 202111
  2. THALIDOMIDE [Suspect]
     Active Substance: THALIDOMIDE
     Indication: Chronic cutaneous lupus erythematosus
     Dosage: RESTARTED ON AN UNKNOWN DATE

REACTIONS (3)
  - Pulmonary thrombosis [Unknown]
  - Off label use [Unknown]
  - Somnolence [Unknown]
